FAERS Safety Report 8559964-7 (Version None)
Quarter: 2012Q3

REPORT INFORMATION
  Report Type: 
  Country: None (occurrence: None)
  Receive Date: 20120802
  Receipt Date: 20120724
  Transmission Date: 20120928
  Serious: Yes (Hospitalization)
  Sender: FDA-Public Use
  Company Number: US-US-EMD SERONO, INC.-7145462

PATIENT
  Sex: Female

DRUGS (2)
  1. STEROIDS [Suspect]
     Indication: MULTIPLE SCLEROSIS
     Route: 042
  2. REBIF [Suspect]
     Indication: MULTIPLE SCLEROSIS
     Route: 058
     Dates: start: 20070129

REACTIONS (10)
  - BURNING SENSATION [None]
  - MULTIPLE SCLEROSIS [None]
  - DEPRESSION [None]
  - BLOOD TRIGLYCERIDES INCREASED [None]
  - INJECTION SITE INDURATION [None]
  - INJECTION SITE REACTION [None]
  - INJECTION SITE ERYTHEMA [None]
  - PARANOIA [None]
  - HYPOAESTHESIA [None]
  - MUSCLE SPASMS [None]
